FAERS Safety Report 17573248 (Version 1)
Quarter: 2020Q1

REPORT INFORMATION
  Report Type: Spontaneous
  Country: FR (occurrence: FR)
  Receive Date: 20200323
  Receipt Date: 20200323
  Transmission Date: 20200409
  Serious: Yes (Other)
  Sender: FDA-Public Use
  Company Number: FR-MYLANLABS-2020M1030282

PATIENT
  Sex: Male

DRUGS (3)
  1. CISPLATIN MYLAN [Suspect]
     Active Substance: CISPLATIN
     Indication: LYMPHADENOPATHY MEDIASTINAL
  2. CISPLATIN MYLAN [Suspect]
     Active Substance: CISPLATIN
     Indication: SQUAMOUS CELL CARCINOMA
     Dosage: UNK
  3. CISPLATIN MYLAN [Suspect]
     Active Substance: CISPLATIN
     Indication: LYMPHANGITIS

REACTIONS (1)
  - Respiratory disorder [Unknown]
